FAERS Safety Report 12377056 (Version 1)
Quarter: 2016Q2

REPORT INFORMATION
  Report Type: Report from Study
  Country: US (occurrence: US)
  Receive Date: 20160517
  Receipt Date: 20160517
  Transmission Date: 20160815
  Serious: No
  Sender: FDA-Public Use
  Company Number: US-MALLINCKRODT-T201503742

PATIENT
  Age: 64 Year
  Sex: Female
  Weight: 79 kg

DRUGS (11)
  1. PREMARIN [Concomitant]
     Active Substance: ESTROGENS, CONJUGATED
  2. MODURETIC 5-50 [Concomitant]
     Active Substance: AMILORIDE HYDROCHLORIDE\HYDROCHLOROTHIAZIDE
  3. TENORMIN [Concomitant]
     Active Substance: ATENOLOL
  4. REPOSITORY CORTICOTROPIN INJECTION [Suspect]
     Active Substance: CORTICOTROPIN
     Indication: ANKYLOSING SPONDYLITIS
     Dosage: 80 UNITS TWICE WEEKLY
     Route: 058
     Dates: start: 20150729
  5. FOLIC ACID. [Concomitant]
     Active Substance: FOLIC ACID
  6. CALCIUM [Concomitant]
     Active Substance: CALCIUM
  7. VITAMIN D3 [Concomitant]
     Active Substance: CHOLECALCIFEROL
  8. REPOSITORY CORTICOTROPIN INJECTION [Suspect]
     Active Substance: CORTICOTROPIN
     Dosage: 40 UNITS 2X/WEEK
     Route: 058
     Dates: start: 20160205
  9. SIMPONI [Concomitant]
     Active Substance: GOLIMUMAB
     Dosage: ONCE MONTHLY
  10. METHOTREXATE [Concomitant]
     Active Substance: METHOTREXATE
  11. REPOSITORY CORTICOTROPIN INJECTION [Suspect]
     Active Substance: CORTICOTROPIN
     Dosage: 80 UNITS TWICE WEEKLY
     Route: 058
     Dates: start: 20150729

REACTIONS (12)
  - Injection site erythema [Recovering/Resolving]
  - Sinusitis [Not Recovered/Not Resolved]
  - Eye inflammation [Not Recovered/Not Resolved]
  - Headache [Not Recovered/Not Resolved]
  - Injection site rash [Recovering/Resolving]
  - Injection site pruritus [Recovering/Resolving]
  - Flushing [Not Recovered/Not Resolved]
  - Insomnia [Not Recovered/Not Resolved]
  - Pain [Not Recovered/Not Resolved]
  - Eye infection [Not Recovered/Not Resolved]
  - Nasopharyngitis [Not Recovered/Not Resolved]
  - Productive cough [Not Recovered/Not Resolved]

NARRATIVE: CASE EVENT DATE: 20150729
